FAERS Safety Report 5657888-6 (Version None)
Quarter: 2008Q1

REPORT INFORMATION
  Report Type: 
  Country: None (occurrence: None)
  Receive Date: 20080310
  Receipt Date: 20080225
  Transmission Date: 20080703
  Serious: Yes (Hospitalization)
  Sender: FDA-Public Use
  Company Number: US-AMGEN-US263099

PATIENT
  Sex: Male
  Weight: 59.5 kg

DRUGS (6)
  1. CINACALCET [Suspect]
     Indication: HYPERPARATHYROIDISM SECONDARY
     Route: 048
     Dates: start: 20071113
  2. PHENERGAN HCL [Suspect]
  3. LISINOPRIL [Suspect]
     Dates: start: 20080101
  4. NEXIUM [Concomitant]
     Route: 048
  5. LIPITOR [Concomitant]
     Route: 048
  6. QUININE SULFATE [Concomitant]
     Route: 048

REACTIONS (2)
  - ELECTROCARDIOGRAM ST SEGMENT DEPRESSION [None]
  - HYPERSENSITIVITY [None]
